FAERS Safety Report 8450092-8 (Version None)
Quarter: 2012Q2

REPORT INFORMATION
  Report Type: 
  Country: None (occurrence: None)
  Receive Date: 20120620
  Receipt Date: 20120306
  Transmission Date: 20120825
  Serious: Yes (Life-Threatening, Hospitalization)
  Sender: FDA-Public Use
  Company Number: CA-ALVOGEN-2011AL000075

PATIENT
  Age: 52 Year
  Sex: Female

DRUGS (10)
  1. AVELOX [Suspect]
     Indication: CYSTITIS
     Dates: start: 20100801
  2. REMICADE [Suspect]
     Indication: CROHN'S DISEASE
     Dosage: 1 EVERY 8 WEEK(S)
     Dates: start: 20090701
  3. MACROBID [Interacting]
     Indication: CROHN'S DISEASE
     Dates: start: 20100801
  4. REMICADE [Suspect]
     Route: 042
  5. CODEINE [Suspect]
     Indication: PRODUCT USED FOR UNKNOWN INDICATION
     Dates: start: 20100801
  6. REMICADE [Suspect]
     Dates: start: 20100913
  7. COTRIM [Suspect]
     Indication: CYSTITIS
  8. AMOXICILLIN [Suspect]
     Indication: CYSTITIS
     Dates: start: 20100801
  9. REMICADE [Suspect]
     Dates: start: 20100913
  10. REMICADE [Suspect]
     Dosage: 1 EVERY 8 WEEK(S)

REACTIONS (14)
  - WHITE BLOOD CELL COUNT INCREASED [None]
  - ABDOMINAL DISCOMFORT [None]
  - CYSTITIS [None]
  - DISEASE PROGRESSION [None]
  - INCISION SITE ABSCESS [None]
  - CROHN'S DISEASE [None]
  - DIZZINESS [None]
  - BLADDER OPERATION [None]
  - HYPOTENSION [None]
  - DRUG HYPERSENSITIVITY [None]
  - DRUG INTERACTION [None]
  - ANAPHYLACTIC SHOCK [None]
  - ABDOMINAL DISTENSION [None]
  - DEHYDRATION [None]
